FAERS Safety Report 17088122 (Version 1)
Quarter: 2019Q4

REPORT INFORMATION
  Report Type: Spontaneous
  Country: US (occurrence: US)
  Receive Date: 20191128
  Receipt Date: 20191128
  Transmission Date: 20200122
  Serious: Yes (Hospitalization, Other)
  Sender: FDA-Public Use
  Company Number: US-PFIZER INC-2019507174

PATIENT
  Age: 50 Year
  Sex: Male

DRUGS (7)
  1. NAPROXEN SODIUM. [Suspect]
     Active Substance: NAPROXEN SODIUM
     Dosage: UNK
  2. PERFOROMIST [Suspect]
     Active Substance: FORMOTEROL FUMARATE DIHYDRATE
     Indication: BRONCHITIS
     Dosage: UNK, 2X/DAY (20MG-2ML, INHALED TWICE DAILY)
     Route: 055
     Dates: start: 20181114
  3. IPRATROPIUM [Suspect]
     Active Substance: IPRATROPIUM
     Indication: BRONCHITIS
     Dosage: UNK , 4X/DAY (0.5-2.5MG, INHALED FOUR TIMES DAILY)
     Route: 055
     Dates: start: 20161012
  4. CEFDINIR. [Suspect]
     Active Substance: CEFDINIR
     Indication: PNEUMONIA BACTERIAL
     Dosage: 300 MG, AS NEEDED (1 CAPSULE BY MOUTH TWICE DAILY FOR 14 DAYS AS NEEDED)
     Route: 048
     Dates: start: 20160815, end: 20191029
  5. ALBUTEROL SULFATE. [Suspect]
     Active Substance: ALBUTEROL SULFATE
     Indication: BRONCHITIS
     Dosage: UNK
  6. BENZONATATE. [Suspect]
     Active Substance: BENZONATATE
     Indication: COUGH
     Dosage: 100 MG, AS NEEDED (EVERY 4-6 HOURS)
     Route: 048
     Dates: start: 20190812
  7. PREDNISONE. [Suspect]
     Active Substance: PREDNISONE
     Dosage: UNK
     Route: 048
     Dates: start: 20161213

REACTIONS (7)
  - Overgrowth fungal [Not Recovered/Not Resolved]
  - Weight decreased [Unknown]
  - Blood alcohol abnormal [Unknown]
  - Alcohol test false positive [Not Recovered/Not Resolved]
  - Sepsis [Unknown]
  - Poisoning [Not Recovered/Not Resolved]
  - Learning disability [Unknown]
